FAERS Safety Report 7262498-3 (Version None)
Quarter: 2011Q1

REPORT INFORMATION
  Report Type: 
  Country: None (occurrence: None)
  Receive Date: 20110130
  Receipt Date: 20101208
  Transmission Date: 20110831
  Serious: No
  Sender: FDA-Public Use
  Company Number: US-ABBOTT-10P-163-0690471-00

PATIENT
  Age: 32 Year
  Sex: Female

DRUGS (2)
  1. HUMIRA [Suspect]
     Indication: CROHN'S DISEASE
     Route: 058
     Dates: start: 20070301, end: 20080901
  2. HUMIRA [Suspect]
     Route: 058
     Dates: start: 20090501

REACTIONS (2)
  - CROHN'S DISEASE [None]
  - ERYTHEMA NODOSUM [None]
